FAERS Safety Report 8951417 (Version 2)
Quarter: 2013Q1

REPORT INFORMATION
  Report Type: Spontaneous
  Country: IE (occurrence: IE)
  Receive Date: 20121207
  Receipt Date: 20130125
  Transmission Date: 20140127
  Serious: Yes (Other)
  Sender: FDA-Public Use
  Company Number: IE-JNJFOC-20121200359

PATIENT
  Age: 63 Year
  Sex: Female

DRUGS (2)
  1. XEPLION [Suspect]
     Indication: SCHIZOPHRENIA
     Route: 030
     Dates: start: 20120901, end: 20121206
  2. UNKNOWN MEDICATION [Concomitant]
     Indication: ARTHRITIS
     Route: 065

REACTIONS (1)
  - Respiratory disorder [Recovered/Resolved]
